FAERS Safety Report 4517301-9 (Version None)
Quarter: 2004Q4

REPORT INFORMATION
  Report Type: 
  Country: None (occurrence: None)
  Receive Date: 20041005
  Receipt Date: 20040628
  Transmission Date: 20050328
  Serious: No
  Sender: FDA-Public Use
  Company Number: SU-2004-002482

PATIENT
  Age: 59 Year
  Sex: Female
  Weight: 95.2554 kg

DRUGS (1)
  1. BENICAR HCT [Suspect]
     Indication: HYPERTENSION
     Dosage: 40.25 MG QD PO
     Route: 048
     Dates: start: 20040520

REACTIONS (8)
  - ASTHENIA [None]
  - CHILLS [None]
  - DIZZINESS [None]
  - HEADACHE [None]
  - MUSCLE CRAMP [None]
  - MUSCLE SPASMS [None]
  - PERIPHERAL COLDNESS [None]
  - PYREXIA [None]
